FAERS Safety Report 5372100-3 (Version None)
Quarter: 2007Q2

REPORT INFORMATION
  Report Type: 
  Country: None (occurrence: None)
  Receive Date: 20070627
  Receipt Date: 20070523
  Transmission Date: 20071010
  Serious: Yes (Other)
  Sender: FDA-Public Use
  Company Number: JP-MERCK-0706USA03146

PATIENT

DRUGS (1)
  1. PEPCID [Suspect]
     Route: 065

REACTIONS (2)
  - BLOOD AMYLASE INCREASED [None]
  - BONE MARROW FAILURE [None]
